FAERS Safety Report 8390950-6 (Version None)
Quarter: 2012Q2

REPORT INFORMATION
  Report Type: 
  Country: None (occurrence: None)
  Receive Date: 20120529
  Receipt Date: 20120523
  Transmission Date: 20120825
  Serious: Yes (Other)
  Sender: FDA-Public Use
  Company Number: PHHY2012FR041816

PATIENT
  Sex: Female

DRUGS (2)
  1. GILENYA [Suspect]
     Indication: RELAPSING-REMITTING MULTIPLE SCLEROSIS
     Dosage: 0.5 MG, QD
     Route: 048
     Dates: start: 20110812, end: 20120511
  2. LIORESAL [Concomitant]
     Dosage: UNK UKN, UNK
     Dates: start: 20120424

REACTIONS (3)
  - URTICARIA [None]
  - PRURITUS [None]
  - PAPULE [None]
